FAERS Safety Report 6126240-1 (Version None)
Quarter: 2009Q1

REPORT INFORMATION
  Report Type: 
  Country: None (occurrence: None)
  Receive Date: 20090320
  Receipt Date: 20090309
  Transmission Date: 20090719
  Serious: No
  Sender: FDA-Public Use
  Company Number: JP-4680

PATIENT
  Age: 35 Year
  Sex: Female

DRUGS (1)
  1. NIZORAL [Suspect]
     Indication: CANDIDIASIS
     Route: 048

REACTIONS (1)
  - DRUG EXPOSURE DURING PREGNANCY [None]
